FAERS Safety Report 5252639-1 (Version None)
Quarter: 2007Q1

REPORT INFORMATION
  Report Type: 
  Country: None (occurrence: None)
  Receive Date: 20070301
  Receipt Date: 20061031
  Transmission Date: 20070707
  Serious: No
  Sender: FDA-Public Use
  Company Number: US-GLAXOSMITHKLINE-A0625589A

PATIENT
  Age: 34 Year
  Sex: Female

DRUGS (3)
  1. LAMICTAL [Suspect]
     Indication: BIPOLAR DISORDER
     Dosage: .25TAB PER DAY
     Route: 048
     Dates: start: 20060901, end: 20060906
  2. ARMOUR [Concomitant]
  3. PROGESTERONE CREAM [Concomitant]

REACTIONS (2)
  - PRURITUS [None]
  - RASH [None]
